FAERS Safety Report 14077085 (Version 4)
Quarter: 2018Q1

REPORT INFORMATION
  Report Type: Spontaneous
  Country: CO (occurrence: CO)
  Receive Date: 20171012
  Receipt Date: 20180208
  Transmission Date: 20180508
  Serious: Yes (Hospitalization, Other)
  Sender: FDA-Public Use
  Company Number: CO-AMGEN-COLSP2017154147

PATIENT
  Age: 66 Year
  Sex: Male

DRUGS (1)
  1. ENBREL [Suspect]
     Active Substance: ETANERCEPT
     Indication: PSORIATIC ARTHROPATHY
     Dosage: 50 MG, QWK
     Route: 058
     Dates: start: 2013, end: 2014

REACTIONS (5)
  - Head discomfort [Unknown]
  - Cardiac disorder [Unknown]
  - Psoriasis [Recovered/Resolved]
  - Cardiac valve disease [Not Recovered/Not Resolved]
  - Memory impairment [Not Recovered/Not Resolved]
